FAERS Safety Report 7656477-1 (Version None)
Quarter: 2011Q3

REPORT INFORMATION
  Report Type: 
  Country: None (occurrence: None)
  Receive Date: 20110804
  Receipt Date: 20100712
  Transmission Date: 20111222
  Serious: No
  Sender: FDA-Public Use
  Company Number: US-BAUSCH-2010BL003765

PATIENT
  Age: 87 Year
  Sex: Female

DRUGS (2)
  1. OPCON-A [Suspect]
     Indication: EYE ALLERGY
     Route: 047
     Dates: start: 20100710, end: 20100710
  2. ARTIFICIAL TEARS LUBRICANT EYE DROPS [Concomitant]
     Indication: DRY EYE
     Route: 047

REACTIONS (2)
  - EYE IRRITATION [None]
  - FEAR [None]
